FAERS Safety Report 10255445 (Version 2)
Quarter: 2014Q3

REPORT INFORMATION
  Report Type: Report from Study
  Country: FR (occurrence: FR)
  Receive Date: 20140624
  Receipt Date: 20140702
  Transmission Date: 20150326
  Serious: Yes (Hospitalization)
  Sender: FDA-Public Use
  Company Number: FR-PFIZER INC-2014162598

PATIENT
  Age: 74 Year
  Sex: Female

DRUGS (4)
  1. SUTENT [Suspect]
     Active Substance: SUNITINIB MALATE
     Indication: CHOLANGIOCARCINOMA
     Dosage: 37.5 MG, DAILY
     Route: 048
     Dates: start: 20140128
  2. SUTENT [Suspect]
     Active Substance: SUNITINIB MALATE
     Dosage: 25 MG, 1X/DAY
     Route: 048
     Dates: end: 20140526
  3. OXYNORM [Concomitant]
     Active Substance: OXYCODONE HYDROCHLORIDE
  4. OXYCONTIN [Suspect]
     Active Substance: OXYCODONE HYDROCHLORIDE
     Indication: PAIN
     Dosage: 20 MG, 2X/DAY
     Route: 048
     Dates: start: 20140113, end: 20140522

REACTIONS (3)
  - Hypothyroidism [Recovered/Resolved]
  - Confusional state [Recovered/Resolved]
  - Psychomotor skills impaired [Recovered/Resolved]

NARRATIVE: CASE EVENT DATE: 20140519
